FAERS Safety Report 21774151 (Version 3)
Quarter: 2023Q2

REPORT INFORMATION
  Report Type: Spontaneous
  Country: BR (occurrence: BR)
  Receive Date: 20221223
  Receipt Date: 20230519
  Transmission Date: 20230721
  Serious: Yes (Disabling, Other)
  Sender: FDA-Public Use
  Company Number: BR-CELLTRION INC.-2022BR021467

PATIENT

DRUGS (14)
  1. TRUXIMA [Suspect]
     Active Substance: RITUXIMAB-ABBS
     Indication: Eosinophilic fasciitis
     Dosage: 500 MG (2 AMPOULES EVERY 15 DAYS)
     Route: 042
  2. TRUXIMA [Suspect]
     Active Substance: RITUXIMAB-ABBS
     Dosage: 500 MG (2 AMPOULES EVERY 15 DAYS)
     Route: 042
     Dates: start: 20230203
  3. TRUXIMA [Suspect]
     Active Substance: RITUXIMAB-ABBS
     Dosage: 500 MG (2 AMPOULES EVERY 15 DAYS)
     Route: 042
     Dates: start: 20230218
  4. DEFLAZACORT [Concomitant]
     Active Substance: DEFLAZACORT
     Dosage: 2 CAPSULES A DAY (3 YEARS AGO)
     Route: 048
  5. SPIRONOLACTONE [Concomitant]
     Active Substance: SPIRONOLACTONE
     Dosage: 25 MILLIGRAM, 1 CAPSULE A DAY (3 YEARS AGO)
     Route: 048
  6. DAPAGLIFLOZIN [Concomitant]
     Active Substance: DAPAGLIFLOZIN
     Dosage: 10 MILLIGRAM, 1 CAPSULE A DAY (3 YERAS AGO)
     Route: 048
  7. METFORMIN HYDROCHLORIDE [Concomitant]
     Active Substance: METFORMIN HYDROCHLORIDE
     Dosage: 500 MILLIGRAM, 2 CAPSULES A DAY (2 CAPSULES A DAY)
     Route: 048
  8. VENLAFAXINE HYDROCHLORIDE [Concomitant]
     Active Substance: VENLAFAXINE HYDROCHLORIDE
     Indication: Anxiety
     Dosage: UNK, 1 CAPSULE A DAY (3 YEARS AGO)
     Route: 048
  9. LYRICA [Concomitant]
     Active Substance: PREGABALIN
     Indication: Neuralgia
     Dosage: 4 CAPSULES A DAY (3 YEARS AGO)
     Route: 048
  10. Prosso d+ [Concomitant]
     Dosage: 1 CAPSULE A DAY (FOR 3 YEARS)
  11. ROSUVASTATIN [Concomitant]
     Active Substance: ROSUVASTATIN
     Dosage: 1 CAPSULE A DAY, FOR 3 YEARS
  12. MYCOPHENOLATE MOFETIL [Concomitant]
     Active Substance: MYCOPHENOLATE MOFETIL
     Dosage: 3 CAPSULES A DAY, 3 YEARS OF CONTINUOUS USE
  13. PRAMIPEXOLE [Concomitant]
     Active Substance: PRAMIPEXOLE
     Dosage: 0.1MG, 1 CAPSULE A DAY
  14. METOPROLOL SUCCINATE [Concomitant]
     Active Substance: METOPROLOL SUCCINATE
     Indication: Cardiovascular disorder
     Dosage: 4 CAPSULES A DAY (3 YEARS AGO)
     Route: 048

REACTIONS (13)
  - Eosinophilic fasciitis [Unknown]
  - Walking aid user [Recovered/Resolved]
  - Wheelchair user [Recovered/Resolved]
  - Bedridden [Recovered/Resolved]
  - Loss of personal independence in daily activities [Recovered/Resolved]
  - Mobility decreased [Recovered/Resolved]
  - Limb discomfort [Recovered/Resolved]
  - Muscle spasms [Recovered/Resolved]
  - Pain [Recovered/Resolved]
  - Weight decreased [Recovered/Resolved]
  - Off label use [Unknown]
  - Therapy interrupted [Unknown]
  - Drug effective for unapproved indication [Unknown]
